FAERS Safety Report 19362076 (Version 2)
Quarter: 2021Q3

REPORT INFORMATION
  Report Type: Spontaneous
  Country: US (occurrence: US)
  Receive Date: 20210603
  Receipt Date: 20210808
  Transmission Date: 20211014
  Serious: No
  Sender: FDA-Public Use
  Company Number: US-AMGEN-USASP2021083750

PATIENT
  Age: 60 Year
  Sex: Female

DRUGS (2)
  1. OTEZLA [Suspect]
     Active Substance: APREMILAST
     Indication: PSORIASIS
     Dosage: 30 MILLIGRAM, BID
     Route: 048
     Dates: start: 20191003
  2. OTEZLA [Suspect]
     Active Substance: APREMILAST
     Indication: CONGENITAL CYSTIC KIDNEY DISEASE

REACTIONS (8)
  - Endoscopy [Unknown]
  - Psoriasis [Recovered/Resolved]
  - Large intestine polyp [Unknown]
  - Pruritus [Unknown]
  - Arthralgia [Recovered/Resolved]
  - Colonoscopy [Unknown]
  - Stress [Unknown]
  - Musculoskeletal stiffness [Recovered/Resolved]

NARRATIVE: CASE EVENT DATE: 2021
